FAERS Safety Report 5290813-9 (Version None)
Quarter: 2007Q2

REPORT INFORMATION
  Report Type: 
  Country: None (occurrence: None)
  Receive Date: 20070409
  Receipt Date: 20070326
  Transmission Date: 20071010
  Serious: Yes (Other)
  Sender: FDA-Public Use
  Company Number: SE-PFIZER INC-2007014169

PATIENT
  Sex: Male

DRUGS (4)
  1. NEURONTIN [Suspect]
     Indication: NEURALGIA
     Route: 048
  2. AMITRIPTYLINE HCL [Suspect]
     Dosage: DAILY DOSE:40MG
     Route: 048
  3. TRAMADOL HCL [Concomitant]
     Route: 048
  4. DIAZEPAM [Concomitant]

REACTIONS (5)
  - DYSARTHRIA [None]
  - MUSCLE SPASMS [None]
  - PAIN [None]
  - VERTIGO [None]
  - VISUAL ACUITY REDUCED [None]
